FAERS Safety Report 25402253 (Version 1)
Quarter: 2025Q2

REPORT INFORMATION
  Report Type: Spontaneous
  Country: US (occurrence: US)
  Receive Date: 20250605
  Receipt Date: 20250605
  Transmission Date: 20250717
  Serious: Yes (Other)
  Sender: AMGEN
  Company Number: US-AMGEN-USASP2025107517

PATIENT

DRUGS (1)
  1. PREDNISONE [Suspect]
     Active Substance: PREDNISONE
     Indication: Familial mediterranean fever
     Route: 065

REACTIONS (9)
  - Growth failure [Unknown]
  - Failure to thrive [Unknown]
  - Inflammatory bowel disease [Unknown]
  - Familial mediterranean fever [Unknown]
  - Joint deformity [Unknown]
  - Short stature [Unknown]
  - Joint contracture [Unknown]
  - Product dose omission issue [Unknown]
  - Off label use [Unknown]
